FAERS Safety Report 24665703 (Version 1)
Quarter: 2024Q4

REPORT INFORMATION
  Report Type: Report from Study
  Country: US (occurrence: US)
  Receive Date: 20241126
  Receipt Date: 20241126
  Transmission Date: 20250115
  Serious: Yes (Other)
  Sender: ELI LILLY AND COMPANY
  Company Number: US-ELI_LILLY_AND_COMPANY-US202411009231

PATIENT
  Age: 83 Year
  Sex: Female

DRUGS (1)
  1. KISUNLA [Suspect]
     Active Substance: DONANEMAB-AZBT
     Indication: Product used for unknown indication
     Dosage: UNK UNK, UNKNOWN
     Route: 065

REACTIONS (3)
  - Amyloid related imaging abnormality-oedema/effusion [Unknown]
  - Cerebral haemorrhage [Unknown]
  - Apolipoprotein E increased [Unknown]

NARRATIVE: CASE EVENT DATE: 20241107
